FAERS Safety Report 9385766 (Version 1)
Quarter: 2013Q3

REPORT INFORMATION
  Report Type: Report from Study
  Country: BR (occurrence: BR)
  Receive Date: 20130705
  Receipt Date: 20130705
  Transmission Date: 20140515
  Serious: Yes (Other)
  Sender: FDA-Public Use
  Company Number: PHHY2013BR067826

PATIENT
  Sex: Female
  Weight: 52 kg

DRUGS (3)
  1. EXELON [Suspect]
     Indication: DEMENTIA ALZHEIMER^S TYPE
     Dosage: 3 MG, DAILY (2 TABLETS OF 1.5 MG DAILY - 1 TABLET IN THE MORNING AND 1 TABLET IN THE AFTERNOON)
     Route: 048
  2. EXELON [Suspect]
     Dosage: 6 MG, DAILY (2 TABLETS OF 3 MG DAILY - 1 TABLET IN THE MORNING AND 1 TABLET IN THE AFTERNOON)
     Route: 048
  3. OMEPRAZOLE [Concomitant]
     Dosage: 2 DF, DAILY (1 TABLET FASTING AND 1 TABLET AT NIGHT)
     Route: 048

REACTIONS (11)
  - Vascular occlusion [Not Recovered/Not Resolved]
  - Iron deficiency [Recovered/Resolved]
  - Vitamin D deficiency [Recovered/Resolved]
  - Diet refusal [Recovered/Resolved]
  - Headache [Recovered/Resolved]
  - Abdominal pain upper [Recovered/Resolved]
  - Apathy [Recovered/Resolved]
  - Vomiting [Recovered/Resolved]
  - Nausea [Recovered/Resolved]
  - Confusional state [Recovered/Resolved]
  - Amnesia [Recovered/Resolved]
